FAERS Safety Report 11335566 (Version 1)
Quarter: 2015Q3

REPORT INFORMATION
  Report Type: Spontaneous
  Country: KR (occurrence: KR)
  Receive Date: 20150804
  Receipt Date: 20150804
  Transmission Date: 20151125
  Serious: Yes (Death, Other)
  Sender: FDA-Public Use
  Company Number: KR-GLAXOSMITHKLINE-KR2015GSK111315

PATIENT
  Age: 33 Year
  Sex: Male

DRUGS (2)
  1. LAMOTRIGINE. [Suspect]
     Active Substance: LAMOTRIGINE
     Indication: EPILEPSY
     Dosage: 100 MG, QD
     Route: 065
  2. LEVETIRACETAM. [Concomitant]
     Active Substance: LEVETIRACETAM
     Indication: EPILEPSY
     Dosage: UNK
     Route: 065

REACTIONS (10)
  - Stevens-Johnson syndrome [Unknown]
  - Erythema [Unknown]
  - Oedema mouth [Unknown]
  - Coma [Unknown]
  - Hepatic encephalopathy [Unknown]
  - Depressed level of consciousness [Unknown]
  - Conjunctivitis [Unknown]
  - Hepatic failure [Fatal]
  - Coagulopathy [Unknown]
  - Skin lesion [Recovering/Resolving]
